FAERS Safety Report 24645879 (Version 4)
Quarter: 2025Q3

REPORT INFORMATION
  Report Type: Spontaneous
  Country: JP (occurrence: JP)
  Receive Date: 20241121
  Receipt Date: 20250810
  Transmission Date: 20251021
  Serious: Yes (Death, Other)
  Sender: ALEXION PHARMACEUTICALS
  Company Number: JP-ASTRAZENECA-240129501_064320_P_1

PATIENT
  Age: 66 Year
  Sex: Male

DRUGS (3)
  1. ANDEXXA [Suspect]
     Active Substance: ANDEXANET ALFA
     Indication: Respiratory tract haemorrhage
  2. EDOXABAN TOSYLATE [Concomitant]
     Active Substance: EDOXABAN TOSYLATE
     Indication: Atrial fibrillation
  3. ANDEXXA [Suspect]
     Active Substance: ANDEXANET ALFA
     Indication: Respiratory tract haemorrhage

REACTIONS (3)
  - Multiple organ dysfunction syndrome [Unknown]
  - Disseminated intravascular coagulation [Unknown]
  - Pulmonary artery aneurysm [Fatal]

NARRATIVE: CASE EVENT DATE: 20240930
